FAERS Safety Report 5723387-6 (Version None)
Quarter: 2008Q2

REPORT INFORMATION
  Report Type: 
  Country: None (occurrence: None)
  Receive Date: 20080430
  Receipt Date: 20080425
  Transmission Date: 20081010
  Serious: Yes (Other)
  Sender: FDA-Public Use
  Company Number: PHHY2008JP05054

PATIENT
  Sex: Male

DRUGS (2)
  1. DIOVAN [Suspect]
     Dosage: 80 MG/DAY
     Route: 048
  2. BEZATOL - SLOW RELEASE [Suspect]
     Dosage: 200 MG/DAY
     Route: 048
     Dates: end: 20080403

REACTIONS (1)
  - BLOOD CREATINE PHOSPHOKINASE INCREASED [None]
